FAERS Safety Report 5369401-1 (Version None)
Quarter: 2007Q2

REPORT INFORMATION
  Report Type: 
  Country: None (occurrence: None)
  Receive Date: 20070625
  Receipt Date: 20070411
  Transmission Date: 20071010
  Serious: No
  Sender: FDA-Public Use
  Company Number: US-ASTRAZENECA-2007UW07131

PATIENT
  Age: 51 Year
  Sex: Male

DRUGS (3)
  1. CRESTOR [Suspect]
     Route: 048
  2. GLUCOPHAGE [Concomitant]
  3. LANTUS [Concomitant]

REACTIONS (4)
  - AMNESIA [None]
  - DIABETES MELLITUS INADEQUATE CONTROL [None]
  - IRRITABILITY [None]
  - MOOD SWINGS [None]
